FAERS Safety Report 7880491-4 (Version None)
Quarter: 2011Q4

REPORT INFORMATION
  Report Type: 
  Country: None (occurrence: None)
  Receive Date: 20111101
  Receipt Date: 20111026
  Transmission Date: 20120403
  Serious: Yes (Death, Other)
  Sender: FDA-Public Use
  Company Number: PHHY2011US95077

PATIENT
  Age: 20 Year
  Sex: Male

DRUGS (7)
  1. CYCLOPHOSPHAMIDE [Concomitant]
  2. ETOPOSIDE [Concomitant]
  3. RADIOTHERAPY [Concomitant]
  4. CYCLOSPORINE [Suspect]
     Indication: PROPHYLAXIS AGAINST GRAFT VERSUS HOST DISEASE
  5. PREDNISONE [Concomitant]
  6. VINCRISTINE [Concomitant]
  7. DOXORUBICIN HCL [Concomitant]

REACTIONS (4)
  - CONCOMITANT DISEASE PROGRESSION [None]
  - MUCOSAL INFLAMMATION [None]
  - RHABDOMYOSARCOMA RECURRENT [None]
  - SKIN TOXICITY [None]
